FAERS Safety Report 14255113 (Version 2)
Quarter: 2018Q1

REPORT INFORMATION
  Report Type: Report from Study
  Country: US (occurrence: US)
  Receive Date: 20171206
  Receipt Date: 20180104
  Transmission Date: 20180508
  Serious: Yes (Hospitalization)
  Sender: FDA-Public Use
  Company Number: US-GLAXOSMITHKLINE-US2017GSK183119

PATIENT
  Age: 64 Year
  Sex: Female

DRUGS (5)
  1. REMODULIN [Suspect]
     Active Substance: TREPROSTINIL
     Indication: PULMONARY HYPERTENSION
     Dosage: 40 NG/KG/MIN CONTINUOUS
     Route: 041
  2. REMODULIN [Suspect]
     Active Substance: TREPROSTINIL
     Indication: PULMONARY ARTERIAL HYPERTENSION
     Dosage: 5 NG/KG/MIN CONTINUOUS
     Route: 042
  3. EPOPROSTENOL SODIUM POWDER FOR INFUSION [Suspect]
     Active Substance: EPOPROSTENOL SODIUM
     Indication: PRODUCT USED FOR UNKNOWN INDICATION
     Dosage: UNK
     Route: 041
     Dates: start: 20171109
  4. DILTIAZEM. [Concomitant]
     Active Substance: DILTIAZEM
  5. ELIQUIS [Concomitant]
     Active Substance: APIXABAN

REACTIONS (8)
  - Condition aggravated [Unknown]
  - Nausea [Unknown]
  - Malaise [Unknown]
  - Wrong drug administered [Unknown]
  - Vomiting [Unknown]
  - Abdominal pain upper [Unknown]
  - Mental status changes [Unknown]
  - Urinary tract infection [Unknown]

NARRATIVE: CASE EVENT DATE: 20171109
